FAERS Safety Report 5957154-5 (Version None)
Quarter: 2008Q4

REPORT INFORMATION
  Report Type: 
  Country: None (occurrence: None)
  Receive Date: 20081106
  Receipt Date: 20080410
  Transmission Date: 20090506
  Serious: Yes (Hospitalization, Other)
  Sender: FDA-Public Use
  Company Number: US200804003743

PATIENT
  Age: 51 Year
  Sex: Female

DRUGS (3)
  1. PROZAC [Suspect]
     Indication: DEPRESSION
     Dosage: 40 MG
     Dates: end: 20080301
  2. SEROQUEL [Concomitant]
  3. TEGRETOL [Concomitant]

REACTIONS (2)
  - STRESS [None]
  - SUICIDAL IDEATION [None]
